FAERS Safety Report 8403128-4 (Version None)
Quarter: 2012Q2

REPORT INFORMATION
  Report Type: 
  Country: None (occurrence: None)
  Receive Date: 20120601
  Receipt Date: 20120522
  Transmission Date: 20120825
  Serious: Yes (Other)
  Sender: FDA-Public Use
  Company Number: US-JNJFOC-20120519012

PATIENT

DRUGS (7)
  1. ETOPOSIDE [Suspect]
     Indication: DIFFUSE LARGE B-CELL LYMPHOMA
     Dosage: OVER 96 HOURS
     Route: 042
  2. CYCLOPHOSPHAMIDE [Suspect]
     Indication: DIFFUSE LARGE B-CELL LYMPHOMA
     Dosage: BOLUS SCHEDULE
     Route: 042
  3. BACTRIM DS [Concomitant]
     Dosage: FOR THREE DAYS PER WEEK
     Route: 065
  4. PREDNISONE TAB [Suspect]
     Indication: DIFFUSE LARGE B-CELL LYMPHOMA
     Dosage: BOLUS
     Route: 042
  5. RITUXIMAB [Suspect]
     Indication: DIFFUSE LARGE B-CELL LYMPHOMA
     Route: 065
  6. DOXORUBICIN HCL [Suspect]
     Indication: DIFFUSE LARGE B-CELL LYMPHOMA
     Dosage: OVER 96 HOURS
     Route: 042
  7. VINCRISTINE [Suspect]
     Indication: DIFFUSE LARGE B-CELL LYMPHOMA
     Dosage: OVER 96 HOURS
     Route: 042

REACTIONS (8)
  - ARRHYTHMIA [None]
  - NAUSEA [None]
  - VOMITING [None]
  - FATIGUE [None]
  - MUCOSAL INFLAMMATION [None]
  - PERIPHERAL SENSORY NEUROPATHY [None]
  - FEBRILE NEUTROPENIA [None]
  - PERIPHERAL MOTOR NEUROPATHY [None]
